FAERS Safety Report 15589097 (Version 3)
Quarter: 2024Q3

REPORT INFORMATION
  Report Type: Report from Study
  Country: FR (occurrence: FR)
  Receive Date: 20181106
  Receipt Date: 20240717
  Transmission Date: 20241017
  Serious: Yes (Death, Other)
  Sender: AUROBINDO
  Company Number: FR-AUROBINDO-AUR-APL-2018-053720

PATIENT
  Age: 20 Year
  Sex: Female

DRUGS (4)
  1. TIAPROFENIC ACID [Suspect]
     Active Substance: TIAPROFENIC ACID
     Indication: Product used for unknown indication
     Dosage: 1 DOSAGE FORM, TOTAL
     Route: 048
  2. TRAMADOL [Suspect]
     Active Substance: TRAMADOL\TRAMADOL HYDROCHLORIDE
     Indication: Product used for unknown indication
     Dosage: 1 DOSAGE FORM, TOTAL, ^MASSIVE^ DOSE ; 1 IN TOTAL
     Route: 048
  3. TRAMADOL [Suspect]
     Active Substance: TRAMADOL\TRAMADOL HYDROCHLORIDE
     Dosage: 1 DOSAGE FORM, TOTAL, ^MASSIVE^ DOSE ; 1 IN TOTAL
     Route: 048
  4. TRIMEBUTINE [Suspect]
     Active Substance: TRIMEBUTINE
     Indication: Product used for unknown indication
     Dosage: 1 DOSAGE FORM, TOTAL
     Route: 048

REACTIONS (17)
  - Psychiatric symptom [Fatal]
  - Intentional overdose [Fatal]
  - Completed suicide [Fatal]
  - Suicidal ideation [Fatal]
  - Dyspepsia [Fatal]
  - Coma [Unknown]
  - Altered state of consciousness [Unknown]
  - Seizure [Unknown]
  - Gastrointestinal disorder [Unknown]
  - Dizziness [Unknown]
  - Constipation [Unknown]
  - Hallucination [Unknown]
  - Somnolence [Unknown]
  - Nausea [Unknown]
  - Vomiting [Unknown]
  - Confusional state [Unknown]
  - Neurological symptom [Unknown]
